FAERS Safety Report 22153081 (Version 1)
Quarter: 2023Q1

REPORT INFORMATION
  Report Type: Spontaneous
  Country: SE (occurrence: SE)
  Receive Date: 20230329
  Receipt Date: 20230329
  Transmission Date: 20230417
  Serious: Yes (Life-Threatening, Hospitalization, Other)
  Sender: FDA-Public Use
  Company Number: None

PATIENT
  Age: 51 Year
  Sex: Female

DRUGS (3)
  1. ARTICAINE\EPINEPHRINE [Suspect]
     Active Substance: ARTICAINE\EPINEPHRINE
     Indication: Periodontitis
     Dosage: 40 MG/ML + 10 MIKROGRAM/ML ?4 AMPULLER
     Route: 004
     Dates: start: 20230222, end: 20230222
  2. EPINEPHRINE\PRILOCAINE [Suspect]
     Active Substance: EPINEPHRINE\PRILOCAINE
     Indication: Tooth extraction
     Dosage: 30 MG/ML + 0,54 MIKROGRAM/ML ?2 AMPULLER
     Dates: start: 20230222, end: 20230222
  3. EPINEPHRINE BITARTRATE\LIDOCAINE HYDROCHLORIDE [Suspect]
     Active Substance: EPINEPHRINE BITARTRATE\LIDOCAINE HYDROCHLORIDE
     Indication: Tooth extraction
     Dosage: 20 MG/ML + 12,5 MIKROGRAM/ML ?2 AMPULLER
     Dates: start: 20230222, end: 20230222

REACTIONS (4)
  - Epilepsy [Recovered/Resolved]
  - Pallor [Recovered/Resolved]
  - Skin discolouration [Recovered/Resolved]
  - Dyspnoea [Recovered/Resolved]

NARRATIVE: CASE EVENT DATE: 20230222
